FAERS Safety Report 10333709 (Version 2)
Quarter: 2014Q3

REPORT INFORMATION
  Report Type: Spontaneous
  Country: ZA (occurrence: ZA)
  Receive Date: 20140723
  Receipt Date: 20140804
  Transmission Date: 20150326
  Serious: Yes (Other)
  Sender: FDA-Public Use
  Company Number: ZA-ROCHE-1438859

PATIENT
  Sex: Female

DRUGS (2)
  1. PETHIDINE [Concomitant]
     Active Substance: MEPERIDINE
     Route: 042
  2. MABTHERA [Suspect]
     Active Substance: RITUXIMAB
     Indication: HYPOGAMMAGLOBULINAEMIA
     Dosage: 1ST INFUSION
     Route: 042
     Dates: start: 20140701, end: 20140707

REACTIONS (4)
  - Chest discomfort [Recovered/Resolved]
  - Bronchospasm [Recovered/Resolved]
  - Dyspnoea [Recovered/Resolved]
  - Influenza [Unknown]
